FAERS Safety Report 9845182 (Version 1)
Quarter: 2014Q1

REPORT INFORMATION
  Report Type: Spontaneous
  Country: US (occurrence: None)
  Receive Date: 20140122
  Receipt Date: 20140122
  Transmission Date: 20141002
  Serious: Yes (Death)
  Sender: FDA-Public Use
  Company Number: B0960135A

PATIENT
  Age: 47 Year
  Sex: Female

DRUGS (6)
  1. BUPROPION HYDROCHLORIDE TABLET-EXTENDED RELEASE [Suspect]
     Route: 048
  2. AMLODIPINE [Suspect]
     Route: 048
  3. CARVEDILOL [Suspect]
     Route: 048
  4. HYDROCODONE + PARACETAMOL [Suspect]
     Dosage: ORAL/INTRAVENOUS
  5. CITALOPRAM (FORMULATION UNKNOWN) (GENERIC) CITALOPRAM) [Suspect]
     Route: 048
  6. ALPRAZOLAM [Suspect]
     Route: 048

REACTIONS (1)
  - Completed suicide [None]
